FAERS Safety Report 21103906 (Version 1)
Quarter: 2022Q3

REPORT INFORMATION
  Report Type: Spontaneous
  Country: US (occurrence: None)
  Receive Date: 20220719
  Receipt Date: 20220719
  Transmission Date: 20221027
  Serious: No
  Sender: FDA-Public Use
  Company Number: None

PATIENT
  Age: 76 Year
  Sex: Male

DRUGS (1)
  1. SPRYCEL [Suspect]
     Active Substance: DASATINIB
     Dosage: 100MG DAILY ORAL?
     Route: 048
     Dates: start: 202105

REACTIONS (2)
  - Respiratory disorder [None]
  - Therapy interrupted [None]

NARRATIVE: CASE EVENT DATE: 20220707
